FAERS Safety Report 10283566 (Version 7)
Quarter: 2015Q2

REPORT INFORMATION
  Report Type: Report from Study
  Country: JP (occurrence: JP)
  Receive Date: 20140708
  Receipt Date: 20150416
  Transmission Date: 20150821
  Serious: Yes (Other)
  Sender: FDA-Public Use
  Company Number: JP-JNJFOC-20140604885

PATIENT
  Age: 61 Year
  Sex: Female
  Weight: 56 kg

DRUGS (5)
  1. RIBAVIRIN. [Suspect]
     Active Substance: RIBAVIRIN
     Indication: CHRONIC HEPATITIS C
     Route: 048
     Dates: start: 20140303, end: 20140511
  2. RIBAVIRIN. [Suspect]
     Active Substance: RIBAVIRIN
     Indication: CHRONIC HEPATITIS C
     Route: 048
     Dates: start: 20140512, end: 20140817
  3. PEGASYS [Suspect]
     Active Substance: PEGINTERFERON ALFA-2A
     Indication: CHRONIC HEPATITIS C
     Route: 058
     Dates: start: 20140303, end: 20140811
  4. SOVRIAD [Suspect]
     Active Substance: SIMEPREVIR
     Indication: CHRONIC HEPATITIS C
     Route: 048
     Dates: start: 20140303, end: 20140526
  5. MOHRUS TAPE [Concomitant]
     Active Substance: KETOPROFEN
     Indication: ARTHRALGIA
     Route: 062
     Dates: start: 20140602, end: 20140706

REACTIONS (4)
  - Platelet count decreased [Recovered/Resolved]
  - Cough [Recovered/Resolved]
  - Haemolytic anaemia [Recovered/Resolved]
  - Alopecia [Recovered/Resolved]

NARRATIVE: CASE EVENT DATE: 20140310
